FAERS Safety Report 26189300 (Version 1)
Quarter: 2025Q4

REPORT INFORMATION
  Report Type: Spontaneous
  Country: US (occurrence: US)
  Receive Date: 20251223
  Receipt Date: 20251223
  Transmission Date: 20260117
  Serious: No
  Sender: AUROBINDO
  Company Number: US-AUROBINDO-AUR-APL-2025-065383

PATIENT
  Age: 86 Year
  Sex: Female
  Weight: 85.261 kg

DRUGS (8)
  1. LENALIDOMIDE [Suspect]
     Active Substance: LENALIDOMIDE
     Indication: Product used for unknown indication
     Dosage: 15 MILLIGRAM, DAILY (1 CAP DAILY FOR 21 DAYS ON AND + DAY)
     Route: 061
  2. Allopurinol Oral Tablet 300 Mg [Concomitant]
     Indication: Product used for unknown indication
     Dosage: UNK
     Route: 065
  3. FLUOXETINE HCL 10MG CAPS [Concomitant]
     Indication: Product used for unknown indication
     Dosage: UNK
     Route: 065
  4. MONTELUKAST SODIUM [Concomitant]
     Active Substance: MONTELUKAST SODIUM
     Indication: Product used for unknown indication
     Dosage: UNK
     Route: 065
  5. Aspirin Oral Tablet 325 Mg [Concomitant]
     Indication: Product used for unknown indication
     Dosage: UNK
     Route: 065
  6. Dexamethasone Oral Tablet 4 Mg [Concomitant]
     Indication: Product used for unknown indication
     Dosage: UNK
     Route: 061
  7. Sulfameth-Tmp 800-160 Mg [Concomitant]
     Indication: Product used for unknown indication
     Dosage: UNK
     Route: 065
  8. Acyclovir Oral Tablet 400 Mg [Concomitant]
     Indication: Product used for unknown indication
     Route: 061

REACTIONS (1)
  - Ageusia [Unknown]
